FAERS Safety Report 6657856-1 (Version None)
Quarter: 2010Q1

REPORT INFORMATION
  Report Type: 
  Country: None (occurrence: None)
  Receive Date: 20100330
  Receipt Date: 20100323
  Transmission Date: 20100710
  Serious: Yes (Hospitalization)
  Sender: FDA-Public Use
  Company Number: FR-ROCHE-688724

PATIENT
  Sex: Female

DRUGS (6)
  1. HERCEPTIN [Suspect]
     Indication: BREAST CANCER
     Dosage: FOUR CYCLES WITH PACLITAXEL AND LATER 14 CYCLES ALONE WITH TRASTUZUMAB.
     Route: 042
     Dates: start: 20090101
  2. LEVOTHYROX [Concomitant]
     Dosage: TREATED FOR MORE THAN 2 YEARS
     Route: 048
  3. CONDROSULF [Concomitant]
     Dosage: TREATED FOR MORE THAN 2 YEARS
     Route: 048
  4. CERVOXAN [Concomitant]
     Dosage: TREATED FOR MORE THAN 2 YEARS
     Route: 048
  5. CALCITE D [Concomitant]
     Dosage: DRUG NAME: CALCIT VITAMINE D3 500 MG/444 UI. TREATED FOR MORE THAN 2 YEARS
     Route: 048
  6. TAXOL [Concomitant]
     Indication: BREAST CANCER
     Dosage: FOUR CYCLES
     Dates: start: 20090101

REACTIONS (2)
  - CARDIAC TAMPONADE [None]
  - PERICARDITIS [None]
